FAERS Safety Report 8552314-1 (Version None)
Quarter: 2012Q3

REPORT INFORMATION
  Report Type: 
  Country: None (occurrence: None)
  Receive Date: 20120723
  Receipt Date: 20120723
  Transmission Date: 20120928
  Serious: Yes (Hospitalization)
  Sender: FDA-Public Use
  Company Number: None

PATIENT
  Age: 59 Year
  Sex: Female
  Weight: 49.8 kg

DRUGS (12)
  1. ERLOTINIB HYDROCHLORIDE [Suspect]
     Indication: NON-SMALL CELL LUNG CANCER
     Dosage: 100MG DAILY ORAL
     Route: 048
     Dates: start: 20120301, end: 20120620
  2. ONDANSETRON [Concomitant]
  3. ZOLPIDEM [Concomitant]
  4. LEVOFLOXACIN [Concomitant]
  5. AMPHETAMINE AND DEXTROAMPHETAMINE SALTS [Concomitant]
  6. LORAZEPAM [Concomitant]
  7. DOCETAXEL [Suspect]
     Indication: NON-SMALL CELL LUNG CANCER
     Dosage: 56.3MG/M2 EVERY 21 DAYS IV
     Route: 042
     Dates: start: 20120301, end: 20120612
  8. VIT D TAB [Concomitant]
  9. ALBUTEROL OXYCODONE [Concomitant]
  10. ACETAMINOPHEN/HYDROCODONE BITARTRATE [Concomitant]
  11. ENOXAPARIN [Concomitant]
  12. OXYCODONE HCL [Concomitant]

REACTIONS (3)
  - ABDOMINAL PAIN UPPER [None]
  - LIVER FUNCTION TEST ABNORMAL [None]
  - OBSTRUCTION [None]
